FAERS Safety Report 12311814 (Version 1)
Quarter: 2016Q2

REPORT INFORMATION
  Report Type: Spontaneous
  Country: US (occurrence: US)
  Receive Date: 20160427
  Receipt Date: 20160427
  Transmission Date: 20160815
  Serious: No
  Sender: FDA-Public Use
  Company Number: US-SHIRE-US201604142

PATIENT
  Age: 50 Year
  Sex: Female
  Weight: 59.86 kg

DRUGS (1)
  1. GATTEX [Suspect]
     Active Substance: TEDUGLUTIDE\WATER
     Indication: SHORT-BOWEL SYNDROME
     Dosage: 3 MG, 1X/DAY:QD
     Route: 058
     Dates: start: 201603

REACTIONS (3)
  - Blood potassium decreased [Unknown]
  - Fluid overload [Unknown]
  - Blood creatine increased [Unknown]

NARRATIVE: CASE EVENT DATE: 201603
